FAERS Safety Report 5770592-9 (Version None)
Quarter: 2008Q2

REPORT INFORMATION
  Report Type: 
  Country: None (occurrence: None)
  Receive Date: 20080613
  Receipt Date: 20080430
  Transmission Date: 20081010
  Serious: No
  Sender: FDA-Public Use
  Company Number: US-ABBOTT-08P-163-0450095-00

PATIENT
  Sex: Female
  Weight: 74.456 kg

DRUGS (16)
  1. HUMIRA [Suspect]
     Indication: PSORIASIS
     Route: 058
     Dates: start: 20060309, end: 20080301
  2. HUMIRA [Suspect]
     Indication: PSORIATIC ARTHROPATHY
     Route: 058
     Dates: start: 20080301, end: 20080415
  3. NABURNETONE [Concomitant]
     Indication: PSORIATIC ARTHROPATHY
     Route: 048
  4. METHOTREXATE [Concomitant]
     Indication: PSORIASIS
     Route: 048
  5. METHOTREXATE [Concomitant]
     Indication: PSORIATIC ARTHROPATHY
  6. NAPROXEN SODIUM [Concomitant]
     Indication: PAIN
     Route: 048
  7. DEPAKOTE ER [Concomitant]
     Indication: CONVULSION
     Route: 048
  8. ZONISAMIDE [Concomitant]
     Indication: CONVULSION
     Route: 048
  9. CELECOXIB [Concomitant]
     Indication: PSORIATIC ARTHROPATHY
     Route: 048
  10. PSEUDOEPHEDRINE HYDROCHLORIDE [Concomitant]
     Indication: DRUG USE FOR UNKNOWN INDICATION
     Route: 048
  11. FOLIC ACID [Concomitant]
     Indication: VITAMIN SUPPLEMENTATION
     Route: 048
  12. FIBER TABS [Concomitant]
     Indication: MEDICAL DIET
     Route: 048
  13. M.V.I. [Concomitant]
     Indication: VITAMIN SUPPLEMENTATION
     Route: 048
  14. CALCIUM D [Concomitant]
     Indication: MINERAL SUPPLEMENTATION
     Route: 048
  15. DODONEX 0.0005% [Concomitant]
     Indication: PSORIASIS
     Dosage: AFFECTED AREA
     Route: 061
  16. ELADIL 1% [Concomitant]
     Indication: PSORIASIS
     Dosage: AFFECTED AREA
     Route: 061

REACTIONS (2)
  - PSORIASIS [None]
  - PSORIATIC ARTHROPATHY [None]
